FAERS Safety Report 16335948 (Version 2)
Quarter: 2019Q2

REPORT INFORMATION
  Report Type: Spontaneous
  Country: IT (occurrence: IT)
  Receive Date: 20190521
  Receipt Date: 20190531
  Transmission Date: 20190711
  Serious: Yes (Hospitalization, Other)
  Sender: FDA-Public Use
  Company Number: IT-AUROBINDO-AUR-APL-2019-028675

PATIENT

DRUGS (8)
  1. CLOPIDOGREL [Suspect]
     Active Substance: CLOPIDOGREL BISULFATE
     Indication: HYPERTENSION
  2. WARFARIN [Suspect]
     Active Substance: WARFARIN
     Indication: ATRIAL FIBRILLATION
     Dosage: UNK
     Route: 065
  3. ENOXAPARIN [Suspect]
     Active Substance: ENOXAPARIN
     Indication: ATRIAL FIBRILLATION
     Dosage: 60001U X 2 [SIC]
     Route: 065
  4. WARFARIN [Suspect]
     Active Substance: WARFARIN
     Indication: HYPERTENSION
  5. ASPIRIN. [Suspect]
     Active Substance: ASPIRIN
     Indication: HYPERTENSION
  6. CLOPIDOGREL [Suspect]
     Active Substance: CLOPIDOGREL BISULFATE
     Indication: ATRIAL FIBRILLATION
     Dosage: 75 MILLIGRAM
     Route: 065
  7. ENOXAPARIN [Suspect]
     Active Substance: ENOXAPARIN
     Indication: HYPERTENSION
  8. ASPIRIN. [Suspect]
     Active Substance: ASPIRIN
     Indication: ATRIAL FIBRILLATION
     Dosage: 100 MILLIGRAM

REACTIONS (6)
  - Abdominal wall haematoma [Recovered/Resolved]
  - Cough [Unknown]
  - Arterial haemorrhage [Recovered/Resolved]
  - Epigastric discomfort [Recovered/Resolved]
  - Abdominal pain [Recovered/Resolved]
  - Petechiae [Unknown]
